FAERS Safety Report 10589624 (Version 1)
Quarter: 2014Q4

REPORT INFORMATION
  Report Type: Spontaneous
  Country: DE (occurrence: None)
  Receive Date: 20141114
  Receipt Date: 20141114
  Transmission Date: 20150529
  Serious: Yes (Other)
  Sender: FDA-Public Use
  Company Number: DE-ALSI-201400216

PATIENT
  Age: 7 Year
  Sex: Female

DRUGS (3)
  1. OXYGEN. [Concomitant]
     Active Substance: OXYGEN
  2. NITROUS OXIDE. [Suspect]
     Active Substance: NITROUS OXIDE
     Indication: SEDATIVE THERAPY
     Dosage: 50% TOTAL RESPIRATORY
  3. METHOTREXATE [Suspect]
     Active Substance: METHOTREXATE
     Indication: ACUTE LYMPHOCYTIC LEUKAEMIA
     Route: 037

REACTIONS (15)
  - Neutropenia [None]
  - Electroencephalogram abnormal [None]
  - Vasogenic cerebral oedema [None]
  - Brain stem microhaemorrhage [None]
  - Cytotoxic oedema [None]
  - Drug ineffective [None]
  - Neurotoxicity [None]
  - Dyskinesia [None]
  - Cognitive disorder [None]
  - Dysarthria [None]
  - Tetany [None]
  - Somnolence [None]
  - Coma scale abnormal [None]
  - Toxicity to various agents [None]
  - Drug interaction [None]
